FAERS Safety Report 10111103 (Version 1)
Quarter: 2014Q2

REPORT INFORMATION
  Report Type: Spontaneous
  Country: US (occurrence: None)
  Receive Date: 20140424
  Receipt Date: 20140424
  Transmission Date: 20141212
  Serious: Yes (Death)
  Sender: FDA-Public Use
  Company Number: None

PATIENT
  Age: 71 Year
  Sex: Male

DRUGS (1)
  1. ZYTIGA 250MG [Suspect]
     Indication: PROSTATE CANCER
     Dates: start: 201304, end: 201312

REACTIONS (1)
  - Death [None]
